FAERS Safety Report 24590491 (Version 1)
Quarter: 2024Q4

REPORT INFORMATION
  Report Type: Spontaneous
  Country: AU (occurrence: AU)
  Receive Date: 20241107
  Receipt Date: 20241107
  Transmission Date: 20250115
  Serious: Yes (Other)
  Sender: FERRING
  Company Number: AU-FERRINGPH-2024FE06151

PATIENT

DRUGS (1)
  1. DEGARELIX [Suspect]
     Active Substance: DEGARELIX
     Indication: Product used for unknown indication
     Dosage: UNK
     Route: 065
     Dates: start: 202408

REACTIONS (5)
  - Pain [Unknown]
  - Contusion [Unknown]
  - Swelling [Unknown]
  - Injection site abscess [Unknown]
  - Injection site haematoma [Unknown]
